FAERS Safety Report 19405347 (Version 1)
Quarter: 2021Q2

REPORT INFORMATION
  Report Type: Spontaneous
  Country: CA (occurrence: CA)
  Receive Date: 20210611
  Receipt Date: 20210611
  Transmission Date: 20210717
  Serious: Yes (Other)
  Sender: FDA-Public Use
  Company Number: CA-CELLTRION INC.-2021CA008003

PATIENT

DRUGS (5)
  1. INFLECTRA [Suspect]
     Active Substance: INFLIXIMAB-DYYB
     Indication: CROHN^S DISEASE
     Dosage: 400 MG,WEEKS 0,2,6, THEN EVERY 8 WEEKS
     Route: 042
     Dates: start: 20201226
  2. INFLECTRA [Suspect]
     Active Substance: INFLIXIMAB-DYYB
     Dosage: 400 MG, WEEKS 0,2,6, THEN EVERY 8 WEEKS
     Route: 042
     Dates: start: 20210331
  3. NACL [Concomitant]
     Active Substance: SODIUM CHLORIDE
     Dosage: UNK
  4. HYDROCORTISONE. [Concomitant]
     Active Substance: HYDROCORTISONE
     Indication: PREMEDICATION
     Dosage: 100 MG
     Dates: start: 20210527, end: 20210527
  5. INFLECTRA [Suspect]
     Active Substance: INFLIXIMAB-DYYB
     Dosage: 400 MG, WEEKS 0,2,6, THEN EVERY 8 WEEKS
     Route: 042
     Dates: start: 20210527

REACTIONS (3)
  - Polyp [Not Recovered/Not Resolved]
  - Blood pressure systolic increased [Unknown]
  - Adverse event [Recovered/Resolved]

NARRATIVE: CASE EVENT DATE: 20210527
